FAERS Safety Report 4621708-9 (Version None)
Quarter: 2005Q1

REPORT INFORMATION
  Report Type: 
  Country: None (occurrence: None)
  Receive Date: 20050329
  Receipt Date: 20050208
  Transmission Date: 20050727
  Serious: Yes (Life-Threatening, Hospitalization)
  Sender: FDA-Public Use
  Company Number: AU-2005-BP-02000AU

PATIENT
  Sex: Female
  Weight: 52 kg

DRUGS (4)
  1. MOBIC [Suspect]
     Indication: OSTEOARTHRITIS
     Route: 048
  2. FGF (FERROUS SULFATE/FOLIC ACID) [Concomitant]
     Indication: ANAEMIA
     Dosage: 250/300 MG/MCG
     Route: 048
  3. OSTELIN 1000 (ERGOCALCIFEROL) [Concomitant]
     Dosage: 1000 IU
     Route: 048
  4. TEMAZE [Concomitant]
     Indication: INSOMNIA
     Route: 048

REACTIONS (4)
  - ACCIDENTAL OVERDOSE [None]
  - ANAEMIA [None]
  - DUODENAL ULCER [None]
  - RENAL FAILURE [None]
